FAERS Safety Report 25123885 (Version 1)
Quarter: 2025Q1

REPORT INFORMATION
  Report Type: Spontaneous
  Country: US (occurrence: None)
  Receive Date: 20250325
  Receipt Date: 20250325
  Transmission Date: 20250408
  Serious: Yes (Life-Threatening, Hospitalization, Disabling)
  Sender: FDA-CTU
  Company Number: None

PATIENT
  Age: 62 Year
  Sex: Female
  Weight: 81.65 kg

DRUGS (14)
  1. NITROFURANTOIN [Suspect]
     Active Substance: NITROFURANTOIN
     Indication: Dysuria
     Dosage: 1 CAPSULE ONCE A DAY TAKEN BY MOUTH
     Route: 048
     Dates: start: 202408, end: 20250115
  2. Gabapentin and Methocarbomol [Concomitant]
  3. Myrbetrig/Myrabegron [Concomitant]
  4. CYCLOSPORINE [Concomitant]
     Active Substance: CYCLOSPORINE
  5. EPIPEN [Concomitant]
     Active Substance: EPINEPHRINE
  6. PROAIR HFA [Concomitant]
     Active Substance: ALBUTEROL SULFATE
  7. IBUPROFEN [Concomitant]
     Active Substance: IBUPROFEN
  8. CELECOXIB [Concomitant]
     Active Substance: CELECOXIB
  9. FISH OIL [Concomitant]
     Active Substance: FISH OIL
  10. VITAMIN D3 [Concomitant]
     Active Substance: CHOLECALCIFEROL
  11. Vitamin K2-M7 [Concomitant]
  12. PROBIOTICS NOS [Concomitant]
     Active Substance: PROBIOTICS NOS
  13. VITAMINS [Concomitant]
     Active Substance: VITAMINS
  14. Salonpas lidacaine patch [Concomitant]

REACTIONS (1)
  - Interstitial lung disease [None]

NARRATIVE: CASE EVENT DATE: 20250115
